FAERS Safety Report 9833398 (Version 1)
Quarter: 2014Q1

REPORT INFORMATION
  Report Type: Spontaneous
  Country: US (occurrence: US)
  Receive Date: 20140121
  Receipt Date: 20140121
  Transmission Date: 20141002
  Serious: No
  Sender: FDA-Public Use
  Company Number: US-009507513-1401USA007368

PATIENT
  Age: 23 Year
  Sex: Female
  Weight: 68.27 kg

DRUGS (2)
  1. NEXPLANON [Suspect]
     Indication: CONTRACEPTION
     Dosage: INSERT LEFT ARM
     Route: 059
     Dates: start: 20130905
  2. SUBOXONE [Concomitant]
     Route: 060

REACTIONS (4)
  - Device dislocation [Unknown]
  - Dizziness [Unknown]
  - Menstrual disorder [Unknown]
  - Abdominal distension [Unknown]
